FAERS Safety Report 20529461 (Version 1)
Quarter: 2022Q1

REPORT INFORMATION
  Report Type: Report from Study
  Country: US (occurrence: US)
  Receive Date: 20220228
  Receipt Date: 20220228
  Transmission Date: 20220424
  Serious: Yes (Hospitalization)
  Sender: FDA-Public Use
  Company Number: US-ABBVIE-22K-163-4293930-00

PATIENT
  Sex: Female

DRUGS (2)
  1. IMBRUVICA [Interacting]
     Active Substance: IBRUTINIB
     Indication: Product used for unknown indication
     Route: 048
  2. DILTIAZEM [Interacting]
     Active Substance: DILTIAZEM
     Indication: Product used for unknown indication
     Route: 065

REACTIONS (4)
  - Head injury [Unknown]
  - Fall [Unknown]
  - Vomiting [Unknown]
  - Drug interaction [Unknown]
